FAERS Safety Report 23854623 (Version 1)
Quarter: 2024Q2

REPORT INFORMATION
  Report Type: Spontaneous
  Country: UA (occurrence: UA)
  Receive Date: 20240514
  Receipt Date: 20240514
  Transmission Date: 20240716
  Serious: Yes (Other)
  Sender: FDA-Public Use
  Company Number: UA-002147023-NVSC2024UA100835

PATIENT
  Age: 35 Year
  Sex: Male
  Weight: 75 kg

DRUGS (1)
  1. OFATUMUMAB [Suspect]
     Active Substance: OFATUMUMAB
     Indication: Multiple sclerosis relapse
     Dosage: 0.4 ML, QW
     Route: 058
     Dates: start: 20240506

REACTIONS (2)
  - Tachycardia [Recovered/Resolved]
  - Body temperature increased [Recovered/Resolved]

NARRATIVE: CASE EVENT DATE: 20240506
